FAERS Safety Report 18168645 (Version 5)
Quarter: 2022Q4

REPORT INFORMATION
  Report Type: Spontaneous
  Country: US (occurrence: US)
  Receive Date: 20200818
  Receipt Date: 20221229
  Transmission Date: 20230113
  Serious: Yes (Disabling, Congenital Anomaly, Other)
  Sender: FDA-Public Use
  Company Number: US-PURDUE-USA-2020-0161549

PATIENT
  Sex: Female

DRUGS (23)
  1. OXYCODONE HYDROCHLORIDE [Suspect]
     Active Substance: OXYCODONE HYDROCHLORIDE
     Indication: Back pain
     Dosage: UNKNOWN
     Route: 048
  2. HYDROCODONE BITARTRATE AND ACETAMINOPHEN [Suspect]
     Active Substance: ACETAMINOPHEN\HYDROCODONE BITARTRATE
     Indication: Product used for unknown indication
     Dosage: 330 MG, UNKNOWN
     Route: 048
  3. ACETAMINOPHEN\OXYCODONE HYDROCHLORIDE [Suspect]
     Active Substance: ACETAMINOPHEN\OXYCODONE HYDROCHLORIDE
     Indication: Product used for unknown indication
     Dosage: 335 MG, UNKNOWN
     Route: 048
  4. PROPOXYPHENE HYDROCHLORIDE AND ACETAMINOPHEN [Suspect]
     Active Substance: ACETAMINOPHEN\PROPOXYPHENE HYDROCHLORIDE
     Indication: Product used for unknown indication
     Dosage: 750 MG, UNKNOWN
     Route: 048
  5. ACETAMINOPHEN\OXYCODONE HYDROCHLORIDE\OXYCODONE TEREPHTHALATE [Suspect]
     Active Substance: ACETAMINOPHEN\OXYCODONE HYDROCHLORIDE\OXYCODONE TEREPHTHALATE
     Indication: Pain
     Dosage: 330 MG, Q6H PRN
     Route: 048
  6. ACETAMINOPHEN\OXYCODONE HYDROCHLORIDE\OXYCODONE TEREPHTHALATE [Suspect]
     Active Substance: ACETAMINOPHEN\OXYCODONE HYDROCHLORIDE\OXYCODONE TEREPHTHALATE
     Indication: Haemorrhoids
  7. HYOSCYAMINE [Concomitant]
     Active Substance: HYOSCYAMINE
     Indication: Product used for unknown indication
     Dosage: 0.125 MG, UNKNOWN
     Route: 060
  8. PROPANOLOL                         /00030001/ [Concomitant]
     Indication: Product used for unknown indication
     Dosage: 10 MG, UNKNOWN
     Route: 048
  9. PROMETHEGAN [Concomitant]
     Active Substance: PROMETHAZINE HYDROCHLORIDE
     Indication: Product used for unknown indication
     Dosage: 25 MG, Q6H PRN
     Route: 054
  10. ALBUTEROL [Concomitant]
     Active Substance: ALBUTEROL
     Indication: Wheezing
     Dosage: UNKNOWN
     Route: 065
  11. ALBUTEROL [Concomitant]
     Active Substance: ALBUTEROL
     Indication: Swelling
  12. ALBUTEROL [Concomitant]
     Active Substance: ALBUTEROL
     Indication: Dysphagia
  13. ALBUTEROL [Concomitant]
     Active Substance: ALBUTEROL
     Indication: Dysphonia
  14. VENTOLIN HFA [Concomitant]
     Active Substance: ALBUTEROL SULFATE
     Indication: Product used for unknown indication
     Dosage: UNKNOWN
     Route: 065
  15. BENZTROPINE [Concomitant]
     Active Substance: BENZTROPINE
     Indication: Product used for unknown indication
     Dosage: 0.5 MG, UNKNOWN
     Route: 048
  16. OLANZAPINE [Concomitant]
     Active Substance: OLANZAPINE
     Indication: Product used for unknown indication
     Dosage: 10 MG, UNKNOWN
     Route: 048
  17. HYDROXYZINE PAMOATE [Concomitant]
     Active Substance: HYDROXYZINE PAMOATE
     Indication: Product used for unknown indication
     Dosage: 25 MG, UNKNOWN
     Route: 048
  18. IPRATROPIUM [Concomitant]
     Active Substance: IPRATROPIUM
     Indication: Product used for unknown indication
     Dosage: UNKNOWN
     Route: 055
  19. AMPHETAMINE [Concomitant]
     Active Substance: AMPHETAMINE
     Indication: Product used for unknown indication
     Dosage: 15 MG, UNKNOWN
     Route: 048
  20. ABILIFY [Concomitant]
     Active Substance: ARIPIPRAZOLE
     Indication: Product used for unknown indication
     Dosage: 10 MG, UNKNOWN
     Route: 048
  21. CARISOPRODOL [Concomitant]
     Active Substance: CARISOPRODOL
     Indication: Product used for unknown indication
     Dosage: 350 MG, UNKNOWN
     Route: 048
  22. CARBIDOPA AND LEVODOPA [Concomitant]
     Active Substance: CARBIDOPA\LEVODOPA
     Indication: Product used for unknown indication
     Dosage: 110 MG, UNKNOWN
     Route: 048
  23. VERAPAMIL [Concomitant]
     Active Substance: VERAPAMIL HYDROCHLORIDE
     Indication: Product used for unknown indication
     Dosage: 120 MG, UNKNOWN
     Route: 048

REACTIONS (82)
  - Disability [Unknown]
  - Congenital anomaly [Unknown]
  - Chest injury [Unknown]
  - Fall [Unknown]
  - Spinal fracture [Unknown]
  - Surgery [Unknown]
  - Tooth loss [Unknown]
  - Fractured coccyx [Unknown]
  - Lower limb fracture [Unknown]
  - Sepsis [Unknown]
  - Rib fracture [Unknown]
  - Tardive dyskinesia [Unknown]
  - Autoimmune thyroiditis [Unknown]
  - Toxicity to various agents [Unknown]
  - Tooth fracture [Unknown]
  - Overdose [Unknown]
  - Injury [Unknown]
  - Emotional distress [Unknown]
  - Social problem [Unknown]
  - Gastrointestinal disorder [Unknown]
  - Premature menopause [Unknown]
  - Haemorrhoids [Unknown]
  - Diarrhoea infectious [Unknown]
  - Blood glucose decreased [Unknown]
  - Blood calcium decreased [Unknown]
  - Dehydration [Unknown]
  - Victim of sexual abuse [Unknown]
  - Temporomandibular joint syndrome [Unknown]
  - Joint injury [Unknown]
  - Arthropod bite [Unknown]
  - Imprisonment [Unknown]
  - Limb injury [Unknown]
  - Pain in extremity [Unknown]
  - Hypoaesthesia [Unknown]
  - Muscular weakness [Unknown]
  - Pain [Unknown]
  - Impaired work ability [Unknown]
  - Fatigue [Unknown]
  - Anxiety [Unknown]
  - Depression [Unknown]
  - Asthma [Unknown]
  - Stress urinary incontinence [Unknown]
  - Paraesthesia [Unknown]
  - Tenderness [Unknown]
  - Arthritis [Unknown]
  - Carpal tunnel syndrome [Unknown]
  - Cough [Unknown]
  - Nasal congestion [Unknown]
  - Sinusitis [Unknown]
  - Muscle strain [Unknown]
  - Abdominal pain [Unknown]
  - Influenza [Unknown]
  - Headache [Unknown]
  - Panic attack [Unknown]
  - Muscle spasms [Unknown]
  - Intervertebral disc protrusion [Unknown]
  - Skin lesion [Unknown]
  - Biopsy skin [Unknown]
  - Contusion [Unknown]
  - Asthenia [Unknown]
  - Blood glucose abnormal [Unknown]
  - Blood pressure fluctuation [Unknown]
  - Memory impairment [Unknown]
  - Weight fluctuation [Unknown]
  - Dysarthria [Unknown]
  - Bronchitis [Unknown]
  - Furuncle [Unknown]
  - Dental caries [Unknown]
  - Hypoglycaemia [Unknown]
  - Post-traumatic stress disorder [Unknown]
  - Aneurysm [Unknown]
  - Seborrhoeic keratosis [Unknown]
  - Victim of abuse [Unknown]
  - Actinic keratosis [Unknown]
  - Bacterial vaginosis [Unknown]
  - Cervical dysplasia [Unknown]
  - Human papilloma virus test positive [Unknown]
  - Abscess [Unknown]
  - Diarrhoea [Unknown]
  - Food poisoning [Unknown]
  - Unevaluable event [Unknown]
  - Product prescribing issue [Unknown]

NARRATIVE: CASE EVENT DATE: 20000101
